FAERS Safety Report 18425501 (Version 1)
Quarter: 2020Q4

REPORT INFORMATION
  Report Type: Spontaneous
  Country: IE (occurrence: IE)
  Receive Date: 20201026
  Receipt Date: 20201026
  Transmission Date: 20210114
  Serious: Yes (Other)
  Sender: FDA-Public Use
  Company Number: NVSC2020IE280390

PATIENT
  Age: 81 Year
  Sex: Female

DRUGS (9)
  1. EZETIMIBE (G) [Concomitant]
     Indication: BLOOD CHOLESTEROL
     Dosage: 10 MG
     Route: 048
     Dates: start: 20200920
  2. IBUPROFEN (G) [Suspect]
     Active Substance: IBUPROFEN
     Indication: SPINAL OPERATION
     Dosage: 400 MG,Q12H
     Route: 048
     Dates: start: 20200925, end: 20200927
  3. ZINACEF [Concomitant]
     Active Substance: CEFUROXIME SODIUM
     Indication: INFECTION
     Dosage: 1.5 G, Q8H
     Route: 042
     Dates: start: 20200921, end: 20200924
  4. MONOPOST [Concomitant]
     Active Substance: LATANOPROST
     Indication: GLAUCOMA
     Dosage: 1 DRP (UNIDOSE 50 MICROGRAMS/ML EYE DROPS)
     Route: 047
     Dates: start: 20200920
  5. OXYNORM [Concomitant]
     Active Substance: OXYCODONE HYDROCHLORIDE
     Indication: PAIN
     Dosage: UNK (5 MG - 7.5 MG SC / PO)
     Route: 048
     Dates: start: 20200921
  6. LANSOPRAZOLE. [Suspect]
     Active Substance: LANSOPRAZOLE
     Indication: SPINAL OPERATION
     Dosage: 30 MG, Q24H
     Route: 048
     Dates: start: 20200920, end: 20200928
  7. PARACETAMOL [Concomitant]
     Active Substance: ACETAMINOPHEN
     Indication: PAIN
     Dosage: UNK
     Route: 048
     Dates: start: 20200920
  8. FLUCLOXACILLIN [Suspect]
     Active Substance: FLUCLOXACILLIN
     Indication: SPINAL OPERATION
     Dosage: 2 G, Q6H
     Route: 042
     Dates: start: 20200924, end: 20201001
  9. OXYNORM [Concomitant]
     Active Substance: OXYCODONE HYDROCHLORIDE
     Dosage: UNK (5 MG - 7.5 MG SC / PO)
     Route: 058

REACTIONS (2)
  - Acute kidney injury [Not Recovered/Not Resolved]
  - Tubulointerstitial nephritis [Not Recovered/Not Resolved]

NARRATIVE: CASE EVENT DATE: 20200927
